FAERS Safety Report 5804576-9 (Version None)
Quarter: 2008Q3

REPORT INFORMATION
  Report Type: 
  Country: None (occurrence: None)
  Receive Date: 20080709
  Receipt Date: 20080701
  Transmission Date: 20090109
  Serious: Yes (Other)
  Sender: FDA-Public Use
  Company Number: US-ABBOTT-08P-163-0456866-00

PATIENT
  Sex: Male

DRUGS (2)
  1. HUMIRA [Suspect]
     Indication: DRUG USE FOR UNKNOWN INDICATION
     Route: 058
     Dates: start: 20080401, end: 20080501
  2. HUMIRA [Suspect]
     Route: 058
     Dates: start: 20080501

REACTIONS (2)
  - BENIGN INTRACRANIAL HYPERTENSION [None]
  - HEADACHE [None]
